FAERS Safety Report 4470820-6 (Version None)
Quarter: 2004Q4

REPORT INFORMATION
  Report Type: 
  Country: None (occurrence: None)
  Receive Date: 20041005
  Receipt Date: 20040928
  Transmission Date: 20050328
  Serious: Yes (Hospitalization, Other)
  Sender: FDA-Public Use
  Company Number: USA-2004-0016969

PATIENT
  Sex: Female

DRUGS (1)
  1. MS CONTIN [Suspect]
     Dosage: 105 MG, SEE TEXT, ORAL
     Route: 048

REACTIONS (2)
  - DRUG DEPENDENCE [None]
  - MENTAL DISORDER [None]
